FAERS Safety Report 5757541-4 (Version None)
Quarter: 2008Q2

REPORT INFORMATION
  Report Type: 
  Country: None (occurrence: None)
  Receive Date: 20080603
  Receipt Date: 20080522
  Transmission Date: 20081010
  Serious: Yes (Hospitalization)
  Sender: FDA-Public Use
  Company Number: TR-PFIZER INC-2008045589

PATIENT
  Sex: Female

DRUGS (1)
  1. PREGABALIN [Suspect]
     Indication: HERNIA
     Route: 048

REACTIONS (4)
  - HYPERGLYCAEMIA [None]
  - HYPOTENSION [None]
  - SOMNOLENCE [None]
  - VOMITING [None]
